FAERS Safety Report 7493438-X (Version None)
Quarter: 2011Q2

REPORT INFORMATION
  Report Type: 
  Country: None (occurrence: None)
  Receive Date: 20110511
  Receipt Date: 20110428
  Transmission Date: 20111010
  Serious: Yes (Other)
  Sender: FDA-Public Use
  Company Number: WAES 1104USA03345

PATIENT
  Age: 60 Year
  Sex: Male

DRUGS (10)
  1. OXYCODONE HCL [Concomitant]
  2. RAMIPRIL [Concomitant]
  3. PLACEBO [Suspect]
     Indication: ACUTE CORONARY SYNDROME
     Dosage: PO
     Route: 048
     Dates: start: 20061221
  4. ACETAMINOPHEN [Concomitant]
  5. PLAVIX [Concomitant]
  6. VYTORIN [Suspect]
     Indication: ACUTE CORONARY SYNDROME
     Dosage: PO
     Route: 048
     Dates: start: 20061221
  7. CARTIA XT [Concomitant]
  8. ATENOLOL [Concomitant]
  9. PLACEBO [Suspect]
     Indication: ACUTE CORONARY SYNDROME
     Dosage: PO
     Route: 048
     Dates: start: 20061221
  10. IMDUR [Concomitant]

REACTIONS (3)
  - GALLBLADDER POLYP [None]
  - DYSURIA [None]
  - BASAL CELL CARCINOMA [None]
